FAERS Safety Report 10664506 (Version 1)
Quarter: 2014Q4

REPORT INFORMATION
  Report Type: Spontaneous
  Country: GB (occurrence: GB)
  Receive Date: 20141219
  Receipt Date: 20141219
  Transmission Date: 20150529
  Serious: Yes (Other)
  Sender: FDA-Public Use
  Company Number: GB-THROMBOGENICS NV-SPO-2014-1555

PATIENT
  Age: 97 Year
  Sex: Female

DRUGS (1)
  1. JETREA [Suspect]
     Active Substance: OCRIPLASMIN
     Indication: VITREOUS ADHESIONS
     Dosage: 0.125 MG, ONE TIME DOSE
     Route: 031

REACTIONS (5)
  - Detachment of retinal pigment epithelium [Unknown]
  - Visual impairment [Unknown]
  - Subretinal fluid [Recovered/Resolved]
  - Retinal injury [Unknown]
  - Visual acuity reduced [Recovering/Resolving]
